FAERS Safety Report 18291967 (Version 2)
Quarter: 2021Q4

REPORT INFORMATION
  Report Type: Spontaneous
  Country: US (occurrence: US)
  Receive Date: 20200921
  Receipt Date: 20211102
  Transmission Date: 20220303
  Serious: No
  Sender: FDA-Public Use
  Company Number: US-JAZZ-JPI-P-012373

PATIENT
  Age: 38 Year
  Sex: Female
  Weight: 59.091 kg

DRUGS (4)
  1. XYREM [Suspect]
     Active Substance: SODIUM OXYBATE
     Indication: Fibromyalgia
     Dosage: 1.5 GRAM, BID
     Route: 048
     Dates: start: 20100905, end: 201009
  2. XYREM [Suspect]
     Active Substance: SODIUM OXYBATE
     Indication: Narcolepsy
     Dosage: 3 GRAM, BID
     Route: 048
     Dates: start: 201009, end: 20101001
  3. XYREM [Suspect]
     Active Substance: SODIUM OXYBATE
     Dosage: 2.5 GRAM, BID
     Route: 048
     Dates: start: 20101002
  4. ACETAMINOPHEN\HYDROCODONE [Concomitant]
     Active Substance: ACETAMINOPHEN\HYDROCODONE
     Indication: Product used for unknown indication

REACTIONS (11)
  - Gait disturbance [Unknown]
  - Fibromyalgia [Unknown]
  - Asthma [Unknown]
  - Apnoea [Unknown]
  - Pollakiuria [Unknown]
  - Anxiety [Unknown]
  - Nausea [Unknown]
  - Terminal insomnia [Unknown]
  - Night sweats [Unknown]
  - Agitation [Not Recovered/Not Resolved]
  - Panic attack [Unknown]

NARRATIVE: CASE EVENT DATE: 20100901
